FAERS Safety Report 7168437-8 (Version None)
Quarter: 2010Q4

REPORT INFORMATION
  Report Type: 
  Country: None (occurrence: None)
  Receive Date: 20101216
  Receipt Date: 20101210
  Transmission Date: 20110411
  Serious: Yes (Hospitalization)
  Sender: FDA-Public Use
  Company Number: US-ABBOTT-10P-163-0685575-00

PATIENT
  Sex: Male
  Weight: 83.082 kg

DRUGS (12)
  1. TRILIPIX [Suspect]
     Indication: BLOOD TRIGLYCERIDES INCREASED
     Dates: start: 20100501, end: 20101101
  2. TRILIPIX [Suspect]
     Indication: AORTIC EMBOLUS
  3. PLAVIX [Suspect]
     Indication: AORTIC EMBOLUS
     Dates: start: 20100701
  4. TRAMADOL [Concomitant]
     Indication: PAIN
  5. LOPRESSOR [Concomitant]
     Indication: HYPERTENSION
  6. HYDROCHLOROTHIAZIDE [Concomitant]
     Indication: HYPERTENSION
  7. ALLOPURINOL [Concomitant]
     Indication: OEDEMA PERIPHERAL
  8. CLARITIN [Concomitant]
     Indication: HYPERSENSITIVITY
  9. FLOMAX [Concomitant]
     Indication: MICTURITION DISORDER
  10. ZOCOR [Concomitant]
     Indication: BLOOD CHOLESTEROL INCREASED
  11. AREDIA [Concomitant]
     Indication: RENAL CANCER
  12. SIMVASTATIN [Concomitant]
     Indication: PRODUCT USED FOR UNKNOWN INDICATION

REACTIONS (10)
  - BLOOD CREATININE INCREASED [None]
  - DIARRHOEA [None]
  - DIZZINESS [None]
  - DUODENAL ULCER HAEMORRHAGE [None]
  - DYSPNOEA [None]
  - GLOMERULAR FILTRATION RATE DECREASED [None]
  - HAEMATOCHEZIA [None]
  - NASOPHARYNGITIS [None]
  - RHINORRHOEA [None]
  - STAPHYLOCOCCAL INFECTION [None]
